FAERS Safety Report 8875615 (Version 1)
Quarter: 2012Q4

REPORT INFORMATION
  Report Type: 
  Country: US (occurrence: US)
  Receive Date: 20121030
  Receipt Date: 20121030
  Transmission Date: 20130627
  Serious: No
  Sender: FDA-Public Use
  Company Number: US-ABBOTT-12P-163-0957106-00

PATIENT
  Sex: Male
  Weight: 86.26 kg

DRUGS (8)
  1. KALETRA TABLETS 200MG/50MG [Suspect]
     Indication: HIV INFECTION
     Dosage: 200/50-2 tablets
     Dates: start: 201203
  2. TRUVADA [Concomitant]
     Indication: HIV INFECTION
  3. BUPROPION [Concomitant]
     Indication: DEPRESSION
  4. DULOXETINE [Concomitant]
     Indication: DEPRESSION
  5. CLONAZEPAM [Concomitant]
     Indication: ANXIETY
  6. OMEGA 3 [Concomitant]
     Indication: SUPPLEMENTATION THERAPY
  7. MULTIVITAMIN [Concomitant]
     Indication: VITAMIN SUPPLEMENTATION
  8. GLUCOSAMINE [Concomitant]
     Indication: MEDICAL DIET

REACTIONS (4)
  - Rash maculo-papular [Not Recovered/Not Resolved]
  - Rash maculo-papular [Not Recovered/Not Resolved]
  - Rash maculo-papular [Not Recovered/Not Resolved]
  - Blood cholesterol increased [Not Recovered/Not Resolved]
